FAERS Safety Report 5118118-7 (Version None)
Quarter: 2006Q3

REPORT INFORMATION
  Report Type: 
  Country: None (occurrence: None)
  Receive Date: 20060928
  Receipt Date: 20060928
  Transmission Date: 20061208
  Serious: Yes (Life-Threatening, Hospitalization)
  Sender: FDA-Public Use
  Company Number: None

PATIENT
  Age: 59 Year
  Sex: Female

DRUGS (9)
  1. GEMZAR [Suspect]
     Indication: PANCREATIC CARCINOMA METASTATIC
     Dosage: 1125 MILLIGRAM WEEKLY IV DRIP
     Route: 041
     Dates: start: 20060901, end: 20060908
  2. TAXOTERE [Suspect]
     Indication: PANCREATIC CARCINOMA METASTATIC
     Dosage: 45 MILLIGRAM WEEKLY IV DRIP
     Route: 041
     Dates: start: 20060901, end: 20060908
  3. XELODA [Suspect]
     Indication: PANCREATIC CARCINOMA METASTATIC
     Dosage: 1500 MG/M2 DAILY PO
     Route: 048
     Dates: start: 20060901, end: 20060908
  4. NEULASTA [Concomitant]
  5. GEMCITABINE [Concomitant]
  6. DOCETAXEL [Concomitant]
  7. SYNTHROID [Concomitant]
  8. ZETIA [Concomitant]
  9. NIASPAN [Concomitant]

REACTIONS (7)
  - ABDOMINAL TENDERNESS [None]
  - COLITIS [None]
  - ESCHERICHIA INFECTION [None]
  - LIVER FUNCTION TEST ABNORMAL [None]
  - NEUTROPENIA [None]
  - URINARY TRACT INFECTION [None]
  - WHITE BLOOD CELL COUNT DECREASED [None]
